FAERS Safety Report 7110388-9 (Version None)
Quarter: 2010Q4

REPORT INFORMATION
  Report Type: 
  Country: None (occurrence: None)
  Receive Date: 20101118
  Receipt Date: 20101104
  Transmission Date: 20110411
  Serious: Yes (Hospitalization)
  Sender: FDA-Public Use
  Company Number: PHHY2010AU74741

PATIENT
  Sex: Female

DRUGS (1)
  1. CLOZARIL [Suspect]
     Dosage: 200 MG
     Dates: start: 20050713

REACTIONS (4)
  - FALL [None]
  - FIBULA FRACTURE [None]
  - LOWER LIMB FRACTURE [None]
  - TIBIA FRACTURE [None]
